FAERS Safety Report 8120644-3 (Version None)
Quarter: 2012Q1

REPORT INFORMATION
  Report Type: 
  Country: None (occurrence: None)
  Receive Date: 20120207
  Receipt Date: 20120203
  Transmission Date: 20120608
  Serious: Yes (Life-Threatening, Other)
  Sender: FDA-Public Use
  Company Number: GB-ASTRAZENECA-2012SE04126

PATIENT
  Age: 61 Year
  Sex: Male
  Weight: 67 kg

DRUGS (10)
  1. SIMVASTATIN [Concomitant]
  2. BRILIQUE [Suspect]
     Indication: ACUTE CORONARY SYNDROME
     Route: 048
     Dates: start: 20120113, end: 20120115
  3. HEPARIN CALCIUM [Concomitant]
  4. ATORVASTATIN [Concomitant]
     Indication: ACUTE CORONARY SYNDROME
     Route: 048
     Dates: start: 20120113
  5. TRAMADOL HCL [Concomitant]
  6. OMEPRAZOLE [Concomitant]
     Indication: GASTRITIS PROPHYLAXIS
     Dates: start: 20120113
  7. RAMIPRIL [Concomitant]
     Indication: ACUTE CORONARY SYNDROME
     Route: 048
     Dates: start: 20120113, end: 20120115
  8. ASPIRIN [Concomitant]
     Indication: ACUTE CORONARY SYNDROME
     Route: 048
     Dates: start: 20120113
  9. BISOPROLOL FUMARATE [Concomitant]
     Indication: ACUTE CORONARY SYNDROME
     Route: 048
     Dates: start: 20120113, end: 20120115
  10. BIVALIRUDIN [Concomitant]

REACTIONS (8)
  - RENAL TUBULAR NECROSIS [None]
  - CARDIAC ARREST [None]
  - NEPHROPATHY [None]
  - VENTRICULAR ASYSTOLE [None]
  - RENAL FAILURE ACUTE [None]
  - NEPHROPATHY TOXIC [None]
  - ATRIOVENTRICULAR BLOCK COMPLETE [None]
  - ATRIOVENTRICULAR BLOCK [None]
